FAERS Safety Report 7401857-2 (Version None)
Quarter: 2011Q1

REPORT INFORMATION
  Report Type: 
  Country: None (occurrence: None)
  Receive Date: 20110329
  Receipt Date: 20110315
  Transmission Date: 20110831
  Serious: Yes (Hospitalization)
  Sender: FDA-Public Use
  Company Number: DAV-AE-AMO-11-004

PATIENT
  Age: 28 Year
  Sex: Male

DRUGS (1)
  1. AMOXICILLIN [Suspect]
     Indication: RESPIRATORY TRACT INFECTION

REACTIONS (1)
  - DRUG ERUPTION [None]
